FAERS Safety Report 4490843-0 (Version None)
Quarter: 2004Q4

REPORT INFORMATION
  Report Type: 
  Country: None (occurrence: None)
  Receive Date: 20041027
  Receipt Date: 20041012
  Transmission Date: 20050328
  Serious: Yes (Other)
  Sender: FDA-Public Use
  Company Number: DE-2004-032813

PATIENT
  Age: 58 Year
  Sex: Male
  Weight: 78 kg

DRUGS (16)
  1. MAGNEVIST [Suspect]
     Indication: NUCLEAR MAGNETIC RESONANCE IMAGING
     Dosage: 31,2 ML, DOSE, INTRAVENOUS
     Route: 042
     Dates: start: 20040914, end: 20040914
  2. DOBUTAMINE (DOBUTAMINE) [Concomitant]
  3. ANTRA (OMEPRAZOLE) [Concomitant]
  4. DIBLOCIN (DOXAZOSIN MALEATE) [Concomitant]
  5. CALCIUM ACETATE (CALCIUM ACETATE) [Concomitant]
  6. FRAGMIN / NET (DALTEPARIN SODIUM) [Concomitant]
  7. LIMPTAR (AMINOPHYLLINE, QUININE SULFATE) [Concomitant]
  8. ROCALTROL [Concomitant]
  9. FOLIC ACID [Concomitant]
  10. DREISAVIT [Concomitant]
  11. NEBILET (NEBIVOLOL HYDROCHLORIDE) [Concomitant]
  12. NORVASC /DEN/ (AMLODIPINE BESILATE) [Concomitant]
  13. ATORVASTATIN CALCIUM [Concomitant]
  14. ACETYLSALICYLIC ACID SRT [Concomitant]
  15. FERLECIT (FERRIC SODIUM GLUCONATE COMPLEX) [Concomitant]
  16. CATAPERSAN /GFR/ (CLONIDINE) [Concomitant]

REACTIONS (13)
  - ANGINA PECTORIS [None]
  - BLOOD IMMUNOGLOBULIN E INCREASED [None]
  - BODY TEMPERATURE INCREASED [None]
  - C-REACTIVE PROTEIN INCREASED [None]
  - CARDIOVASCULAR DISORDER [None]
  - EOSINOPHILIA [None]
  - FATIGUE [None]
  - GENERAL PHYSICAL HEALTH DETERIORATION [None]
  - HOT FLUSH [None]
  - HYPERSENSITIVITY [None]
  - PAIN IN EXTREMITY [None]
  - SEPSIS [None]
  - VOMITING [None]
